FAERS Safety Report 9102825 (Version 1)
Quarter: 2013Q1

REPORT INFORMATION
  Report Type: Spontaneous
  Country: US (occurrence: US)
  Receive Date: 20130218
  Receipt Date: 20130218
  Transmission Date: 20140127
  Serious: Yes (Hospitalization)
  Sender: FDA-Public Use
  Company Number: US-ROCHE-1190941

PATIENT
  Age: 69 Year
  Sex: Male
  Weight: 65 kg

DRUGS (5)
  1. CELLCEPT [Suspect]
     Indication: PROPHYLAXIS
     Route: 048
  2. RAPAMUNE [Suspect]
     Indication: PROPHYLAXIS
     Route: 048
     Dates: start: 20081127, end: 20090529
  3. ADVAGRAF [Concomitant]
     Indication: PRODUCT USED FOR UNKNOWN INDICATION
     Route: 048
     Dates: end: 20120915
  4. ADVAGRAF [Concomitant]
     Route: 065
  5. PROGRAFT [Concomitant]
     Route: 065
     Dates: start: 20120916

REACTIONS (2)
  - Cystitis [Recovered/Resolved]
  - Prostatic adenoma [Recovered/Resolved]
